FAERS Safety Report 24051237 (Version 1)
Quarter: 2024Q3

REPORT INFORMATION
  Report Type: Spontaneous
  Country: US (occurrence: US)
  Receive Date: 20240704
  Receipt Date: 20240704
  Transmission Date: 20241016
  Serious: No
  Sender: SANOFI AVENTIS
  Company Number: US-SANOFI-02117304

PATIENT
  Age: 61 Year
  Sex: Female

DRUGS (1)
  1. LANTUS SOLOSTAR [Suspect]
     Active Substance: INSULIN GLARGINE
     Indication: Type 2 diabetes mellitus
     Dosage: 30 IU, QD
     Dates: start: 202402

REACTIONS (4)
  - Blood glucose increased [Unknown]
  - Needle issue [Unknown]
  - Gastrointestinal infection [Unknown]
  - Cough [Unknown]

NARRATIVE: CASE EVENT DATE: 20240101
